FAERS Safety Report 13705911 (Version 4)
Quarter: 2018Q3

REPORT INFORMATION
  Report Type: Spontaneous
  Country: US (occurrence: US)
  Receive Date: 20170630
  Receipt Date: 20180712
  Transmission Date: 20181010
  Serious: Yes (Death, Other)
  Sender: FDA-Public Use
  Company Number: US-PFIZER INC-2017283943

PATIENT
  Age: 84 Year
  Sex: Female
  Weight: 90 kg

DRUGS (11)
  1. IBRANCE [Suspect]
     Active Substance: PALBOCICLIB
     Dosage: UNK
     Dates: start: 20171126
  2. REQUIP [Concomitant]
     Active Substance: ROPINIROLE HYDROCHLORIDE
     Indication: RESTLESS LEGS SYNDROME
     Dosage: 4 MG, 1X/DAY, (AT NIGHT)
  3. IBRANCE [Suspect]
     Active Substance: PALBOCICLIB
     Dosage: UNK
     Dates: end: 201710
  4. IBRANCE [Suspect]
     Active Substance: PALBOCICLIB
     Indication: BONE CANCER
     Dosage: 75 MG, 1X/DAY
     Route: 048
     Dates: start: 20170607
  5. FULVESTRANT. [Concomitant]
     Active Substance: FULVESTRANT
     Indication: BONE CANCER
     Dosage: SHOT IN THE ARM
  6. VASOTEC [Concomitant]
     Active Substance: ENALAPRIL MALEATE
     Indication: HYPERTENSION
     Dosage: 20 MG, 1X/DAY
  7. LASIX [Concomitant]
     Active Substance: FUROSEMIDE
     Indication: PERIPHERAL SWELLING
     Dosage: 80 MG, 2X/DAY, (80MG IN MORNING AND 80MG IN EVENING)
  8. TYLENOL ARTHRITIS PAIN [Concomitant]
     Active Substance: ACETAMINOPHEN
     Indication: ARTHRITIS
     Dosage: 650 MG, AS NEEDED (ONE CAPSULE )
  9. IBRANCE [Suspect]
     Active Substance: PALBOCICLIB
     Dosage: 100 MG, CYCLIC, (TAKE ONE BY MOUTH DAILY FOR 21 DAYS IN 28 DAY CYCLE)
     Route: 048
     Dates: start: 2017
  10. DENOSUMAB [Concomitant]
     Active Substance: DENOSUMAB
     Indication: BONE CANCER
     Dosage: 2 SHOTS AT A TIME EVERY 2 WEEKS
  11. REQUIP [Concomitant]
     Active Substance: ROPINIROLE HYDROCHLORIDE
     Indication: INSOMNIA

REACTIONS (4)
  - Cataract [Recovered/Resolved]
  - Death [Fatal]
  - Cough [Unknown]
  - Product use in unapproved indication [Unknown]

NARRATIVE: CASE EVENT DATE: 201706
